FAERS Safety Report 12351589 (Version 1)
Quarter: 2016Q2

REPORT INFORMATION
  Report Type: Spontaneous
  Country: US (occurrence: US)
  Receive Date: 20160510
  Receipt Date: 20160510
  Transmission Date: 20160815
  Serious: No
  Sender: FDA-Public Use
  Company Number: US-MYLANLABS-2016M1011709

PATIENT
  Sex: Female
  Weight: 47.62 kg

DRUGS (1)
  1. XULANE [Suspect]
     Active Substance: ETHINYL ESTRADIOL\NORELGESTROMIN
     Dosage: 150/35 ?G, QD, CHANGE PATCH WEEKLY FOR 3 WEEKS, THEN ONE WEEK WITH NO PATCH.
     Route: 062
     Dates: start: 201506

REACTIONS (2)
  - Medication error [Not Recovered/Not Resolved]
  - Metrorrhagia [Not Recovered/Not Resolved]
